FAERS Safety Report 10219326 (Version 1)
Quarter: 2014Q2

REPORT INFORMATION
  Report Type: Spontaneous
  Country: US (occurrence: US)
  Receive Date: 20140605
  Receipt Date: 20140605
  Transmission Date: 20141212
  Serious: Yes (Other)
  Sender: FDA-Public Use
  Company Number: PHEH2014US011199

PATIENT
  Sex: Female

DRUGS (6)
  1. LETROZOLE [Suspect]
     Dosage: 2.5 MG, UNK
     Dates: end: 201310
  2. DIOVAN [Concomitant]
     Dosage: UNK UKN, UNK
  3. HYDRALAZINE [Concomitant]
     Dosage: UNK UKN, UNK
  4. ATENOLOL [Concomitant]
     Dosage: UNK UKN, UNK
  5. PROTONIX [Concomitant]
     Dosage: UNK UKN, UNK
  6. NORVASC [Concomitant]
     Dosage: UNK UKN, UNK

REACTIONS (6)
  - Convulsion [Unknown]
  - Tremor [Unknown]
  - Tongue biting [Unknown]
  - Flushing [Unknown]
  - Dyspnoea [Unknown]
  - Loss of consciousness [Unknown]
